FAERS Safety Report 10098013 (Version 5)
Quarter: 2015Q1

REPORT INFORMATION
  Report Type: Spontaneous
  Country: US (occurrence: None)
  Receive Date: 20140421
  Receipt Date: 20150306
  Transmission Date: 20150720
  Serious: Yes (Hospitalization)
  Sender: FDA-Public Use
  Company Number: 2014SGN00349

PATIENT
  Age: 18 Year
  Sex: Female
  Weight: 57.9 kg

DRUGS (9)
  1. BUDESONIDE (BUDESONIDE) [Concomitant]
     Active Substance: BUDESONIDE
  2. FLOVENT [Concomitant]
     Active Substance: FLUTICASONE PROPIONATE
  3. LIDODERM [Concomitant]
     Active Substance: LIDOCAINE
  4. BRENTUXIMAB VEDOTIN [Suspect]
     Active Substance: BRENTUXIMAB VEDOTIN
     Indication: HODGKIN^S DISEASE
     Dosage: 1.8 MG/KG, Q21D, INTRAVENOUS
     Route: 042
     Dates: start: 20140122, end: 20140212
  5. ALPRAZOLAM (ALPRAZOLAM) [Concomitant]
     Active Substance: ALPRAZOLAM
  6. IBUPROFEN (IBUPROFEN SODIUM) [Concomitant]
  7. MARINOL [Concomitant]
     Active Substance: DRONABINOL
  8. SEPTRA (SULFAMETHOXAZOLE, TRIMETHOPRIM) [Concomitant]
  9. GEMCITABINE [Suspect]
     Active Substance: GEMCITABINE\GEMCITABINE HYDROCHLORIDE
     Indication: HODGKIN^S DISEASE
     Dosage: 1000 MG/M2, QCYCLE, INTRAVENOUS
     Route: 042
     Dates: start: 20140122, end: 20140219

REACTIONS (16)
  - Pulmonary toxicity [None]
  - Atypical mycobacterium test positive [None]
  - Pulmonary necrosis [None]
  - Sepsis [None]
  - Pulmonary mass [None]
  - Oropharyngeal pain [None]
  - Night sweats [None]
  - Superinfection [None]
  - Empyema [None]
  - Lung infection [None]
  - Pneumonitis [None]
  - Tuberculosis [None]
  - Pulmonary pneumatocele [None]
  - Pneumothorax [None]
  - Immunosuppression [None]
  - Hypotension [None]

NARRATIVE: CASE EVENT DATE: 20140228
